FAERS Safety Report 5613916-5 (Version None)
Quarter: 2008Q1

REPORT INFORMATION
  Report Type: 
  Country: None (occurrence: None)
  Receive Date: 20080130
  Receipt Date: 20080117
  Transmission Date: 20080703
  Serious: Yes (Hospitalization)
  Sender: FDA-Public Use
  Company Number: FABR-1000040

PATIENT
  Age: 55 Year
  Sex: Female
  Weight: 105 kg

DRUGS (1)
  1. FABRAZYME [Suspect]
     Indication: FABRY'S DISEASE
     Dosage: 105 MG, Q2W
     Dates: start: 20040101, end: 20070801

REACTIONS (9)
  - ABDOMINAL ABSCESS [None]
  - ABDOMINAL PAIN UPPER [None]
  - ASTHENIA [None]
  - CHOLECYSTITIS [None]
  - CONSTIPATION [None]
  - DECUBITUS ULCER [None]
  - ENTEROCUTANEOUS FISTULA [None]
  - SEPSIS [None]
  - WALKING AID USER [None]
